FAERS Safety Report 5564497-6 (Version None)
Quarter: 2007Q4

REPORT INFORMATION
  Report Type: 
  Country: None (occurrence: None)
  Receive Date: 20071212
  Receipt Date: 20071204
  Transmission Date: 20080405
  Serious: Yes (Other)
  Sender: FDA-Public Use
  Company Number: 062-21880-07101020

PATIENT
  Age: 59 Year
  Sex: Female

DRUGS (1)
  1. REVLIMID [Suspect]
     Indication: MULTIPLE MYELOMA
     Dosage: 10 MG, DAY 1-21, ORAL
     Route: 048
     Dates: start: 20070801, end: 20071024

REACTIONS (2)
  - CARDIAC FAILURE [None]
  - PULMONARY CONGESTION [None]
